FAERS Safety Report 6892055-X (Version None)
Quarter: 2010Q3

REPORT INFORMATION
  Report Type: 
  Country: None (occurrence: None)
  Receive Date: 20100731
  Receipt Date: 20080111
  Transmission Date: 20110219
  Serious: No
  Sender: FDA-Public Use
  Company Number: US-PFIZER INC-2007091750

PATIENT
  Sex: Male
  Weight: 72 kg

DRUGS (5)
  1. AMLODIPINE [Suspect]
     Indication: HYPERTENSION
     Route: 048
     Dates: start: 20071029
  2. AMLODIPINE [Suspect]
  3. LISINOPRIL [Concomitant]
  4. ACETYLSALICYLIC ACID SRT [Concomitant]
  5. RED YEAST RICE [Concomitant]

REACTIONS (6)
  - ANXIETY [None]
  - BLOOD PRESSURE INADEQUATELY CONTROLLED [None]
  - CHEST PAIN [None]
  - FEELING JITTERY [None]
  - HEADACHE [None]
  - NERVOUSNESS [None]
